FAERS Safety Report 23623881 (Version 1)
Quarter: 2024Q1

REPORT INFORMATION
  Report Type: Spontaneous
  Country: US (occurrence: US)
  Receive Date: 20240312
  Receipt Date: 20240312
  Transmission Date: 20240410
  Serious: No
  Sender: FDA-Public Use
  Company Number: US-ELI_LILLY_AND_COMPANY-US202403005392

PATIENT
  Age: 30 Year
  Sex: Male

DRUGS (10)
  1. MOUNJARO [Suspect]
     Active Substance: TIRZEPATIDE
     Indication: Weight control
     Dosage: 2.5 MG, WEEKLY (1/W)
     Route: 058
     Dates: start: 202309
  2. MOUNJARO [Suspect]
     Active Substance: TIRZEPATIDE
     Indication: Weight control
     Dosage: 2.5 MG, WEEKLY (1/W)
     Route: 058
     Dates: start: 202309
  3. MOUNJARO [Suspect]
     Active Substance: TIRZEPATIDE
     Indication: Weight control
     Dosage: 2.5 MG, WEEKLY (1/W)
     Route: 058
     Dates: start: 202309
  4. MOUNJARO [Suspect]
     Active Substance: TIRZEPATIDE
     Indication: Weight control
     Dosage: 2.5 MG, WEEKLY (1/W)
     Route: 058
     Dates: start: 202309
  5. MOUNJARO [Suspect]
     Active Substance: TIRZEPATIDE
     Indication: Weight control
     Dosage: 2.5 MG, WEEKLY (1/W)
     Route: 058
     Dates: start: 202309
  6. MOUNJARO [Suspect]
     Active Substance: TIRZEPATIDE
     Indication: Nervous system disorder
     Dosage: 2.5 MG, WEEKLY (1/W)
     Route: 058
     Dates: start: 202312
  7. MOUNJARO [Suspect]
     Active Substance: TIRZEPATIDE
     Indication: Nervous system disorder
     Dosage: 2.5 MG, WEEKLY (1/W)
     Route: 058
     Dates: start: 202312
  8. MOUNJARO [Suspect]
     Active Substance: TIRZEPATIDE
     Indication: Nervous system disorder
     Dosage: 2.5 MG, WEEKLY (1/W)
     Route: 058
     Dates: start: 202312
  9. MOUNJARO [Suspect]
     Active Substance: TIRZEPATIDE
     Indication: Nervous system disorder
     Dosage: 2.5 MG, WEEKLY (1/W)
     Route: 058
     Dates: start: 202312
  10. MOUNJARO [Suspect]
     Active Substance: TIRZEPATIDE
     Indication: Nervous system disorder
     Dosage: 2.5 MG, WEEKLY (1/W)
     Route: 058
     Dates: start: 202312

REACTIONS (5)
  - Off label use [Unknown]
  - Accidental underdose [Unknown]
  - Incorrect dose administered [Unknown]
  - Constipation [Unknown]
  - Injection site pain [Unknown]

NARRATIVE: CASE EVENT DATE: 20230901
